FAERS Safety Report 13081415 (Version 4)
Quarter: 2018Q2

REPORT INFORMATION
  Report Type: Spontaneous
  Country: US (occurrence: US)
  Receive Date: 20170103
  Receipt Date: 20180620
  Transmission Date: 20180711
  Serious: No
  Sender: FDA-Public Use
  Company Number: US-PFIZER INC-2016596702

PATIENT
  Age: 44 Year
  Sex: Male

DRUGS (1)
  1. SUTENT [Suspect]
     Active Substance: SUNITINIB MALATE
     Indication: RENAL CANCER
     Dosage: 50 MG, DAILY (1 CAPSULE BY MOUTH DAILY)
     Route: 048
     Dates: start: 20161201

REACTIONS (3)
  - Ageusia [Unknown]
  - Rash [Unknown]
  - Dysgeusia [Unknown]

NARRATIVE: CASE EVENT DATE: 201612
